FAERS Safety Report 17020240 (Version 1)
Quarter: 2019Q4

REPORT INFORMATION
  Report Type: Spontaneous
  Country: US (occurrence: US)
  Receive Date: 20191112
  Receipt Date: 20191112
  Transmission Date: 20200122
  Serious: Yes (Other)
  Sender: FDA-Public Use
  Company Number: US-TEVA-2019-US-1135217

PATIENT
  Age: 4 Year
  Sex: Female

DRUGS (10)
  1. CLONIDINE. [Suspect]
     Active Substance: CLONIDINE
     Route: 065
  2. RISPERIDONE. [Suspect]
     Active Substance: RISPERIDONE
     Indication: SMITH-MAGENIS SYNDROME
     Dosage: .125 MILLIGRAM DAILY; ADMINISTERED AT BEDTIME FOR 2 WEEKS, AND THEN TITRATED TO 2 TIMES A DAY
     Route: 065
  3. MELATONIN [Concomitant]
     Active Substance: MELATONIN
     Indication: SMITH-MAGENIS SYNDROME
     Dosage: ADMINISTERED UPON AWAKENING AT 1AM AND EVENTUALLY TITRATED TO 9 MG
     Route: 065
  4. ACEBUTOLOL [Suspect]
     Active Substance: ACEBUTOLOL
     Indication: SMITH-MAGENIS SYNDROME
     Dosage: 200 MILLIGRAM DAILY;
     Route: 065
  5. HYDROXYZINE [Concomitant]
     Active Substance: HYDROXYZINE HYDROCHLORIDE
     Indication: SMITH-MAGENIS SYNDROME
     Dosage: ALTERNATED WITH TRAZODONE AND CLONIDINE AT NIGHT EVERY 2 WEEKS.
     Route: 065
  6. CLONIDINE. [Suspect]
     Active Substance: CLONIDINE
     Indication: SMITH-MAGENIS SYNDROME
     Dosage: .035 MILLIGRAM DAILY; ADMINISTERED ALONGSIDE DIPHENHYDRAMINE AND LIGHT THERAPY, AND LATER ALTERNATED
     Route: 065
  7. RISPERIDONE. [Suspect]
     Active Substance: RISPERIDONE
     Dosage: .25 MILLIGRAM DAILY;
     Route: 065
  8. MELATONIN [Concomitant]
     Active Substance: MELATONIN
     Route: 065
  9. DIPHENHYDRAMINE. [Concomitant]
     Active Substance: DIPHENHYDRAMINE
     Indication: SMITH-MAGENIS SYNDROME
     Route: 065
  10. TRAZODONE [Concomitant]
     Active Substance: TRAZODONE HYDROCHLORIDE
     Indication: SMITH-MAGENIS SYNDROME
     Dosage: ALTERNATED WITH HYDROXYZINE AND CLONIDINE AT NIGHT EVERY 2 WEEKS.
     Route: 065

REACTIONS (2)
  - Drug ineffective [Unknown]
  - Irritability [Unknown]
